FAERS Safety Report 6215700-0 (Version None)
Quarter: 2009Q2

REPORT INFORMATION
  Report Type: 
  Country: None (occurrence: None)
  Receive Date: 20090603
  Receipt Date: 20090603
  Transmission Date: 20091009
  Serious: Yes (Other)
  Sender: FDA-Public Use
  Company Number: None

PATIENT
  Age: 81 Year
  Sex: Female
  Weight: 60.782 kg

DRUGS (1)
  1. AMLODIPINE [Suspect]
     Indication: HYPERTENSION
     Dosage: 1 TAB MOUTH @ BEDTIME
     Route: 048
     Dates: start: 20090428, end: 20090528

REACTIONS (3)
  - ANGIOPATHY [None]
  - PAIN [None]
  - RASH MACULAR [None]
